FAERS Safety Report 9186205 (Version 1)
Quarter: 2013Q1

REPORT INFORMATION
  Report Type: Spontaneous
  Country: US (occurrence: US)
  Receive Date: 20130325
  Receipt Date: 20130325
  Transmission Date: 20140127
  Serious: No
  Sender: FDA-Public Use
  Company Number: US-ASTRAZENECA-2013SE16131

PATIENT
  Age: 49 Year
  Sex: Female
  Weight: 63.5 kg

DRUGS (2)
  1. NEXIUM [Suspect]
     Indication: ULCER
     Route: 048
     Dates: start: 201303
  2. ANTACIDS [Concomitant]

REACTIONS (2)
  - Pyrexia [Unknown]
  - Off label use [Unknown]
